FAERS Safety Report 6876811-X (Version None)
Quarter: 2010Q3

REPORT INFORMATION
  Report Type: 
  Country: None (occurrence: None)
  Receive Date: 20100727
  Receipt Date: 20100719
  Transmission Date: 20110219
  Serious: Yes (Hospitalization)
  Sender: FDA-Public Use
  Company Number: PHHO2010CA11213

PATIENT
  Sex: Female

DRUGS (6)
  1. NEORAL [Suspect]
     Indication: RENAL TRANSPLANT
     Dosage: 150 MG, QD
     Route: 048
     Dates: start: 20100409
  2. NEORAL [Suspect]
     Dosage: 50 MG
     Route: 042
     Dates: start: 20100701
  3. CELLCEPT [Suspect]
     Indication: RENAL TRANSPLANT
     Dosage: 1 G, BID
     Route: 048
  4. CELLCEPT [Suspect]
     Dosage: 1 G, BID
     Route: 042
     Dates: start: 20100702, end: 20100704
  5. CELLCEPT [Suspect]
     Dosage: 500 MG, BID
     Dates: start: 20100705
  6. PREDNISONE [Suspect]
     Indication: RENAL TRANSPLANT
     Dosage: 5 MG, QD
     Route: 048

REACTIONS (11)
  - ABDOMINAL PAIN [None]
  - CHOLECYSTECTOMY [None]
  - DIVERTICULITIS INTESTINAL HAEMORRHAGIC [None]
  - ESCHERICHIA INFECTION [None]
  - FAECES DISCOLOURED [None]
  - LOWER GASTROINTESTINAL HAEMORRHAGE [None]
  - NAUSEA [None]
  - NEPHRECTOMY [None]
  - NUTRITIONAL CONDITION ABNORMAL [None]
  - PYREXIA [None]
  - URINARY TRACT INFECTION [None]
